FAERS Safety Report 4647471-3 (Version None)
Quarter: 2005Q2

REPORT INFORMATION
  Report Type: 
  Country: None (occurrence: None)
  Receive Date: 20050426
  Receipt Date: 20050408
  Transmission Date: 20051028
  Serious: Yes (Hospitalization)
  Sender: FDA-Public Use
  Company Number: RENA-11340

PATIENT
  Age: 71 Year
  Sex: Male

DRUGS (15)
  1. PHOSBLOCK - 250 MG TABLET [Suspect]
     Indication: HYPERPHOSPHATAEMIA
     Dosage: 0.5 G TID PO
     Route: 048
     Dates: start: 20040225
  2. FUROSEMIDE [Concomitant]
  3. TEPRENONE [Concomitant]
  4. ATORVASTATIN CALCIUM [Concomitant]
  5. CARVEDILOL [Concomitant]
  6. NIFEDIPINE [Concomitant]
  7. DOXAZOSIN MESYLATE [Concomitant]
  8. FAMOTIDINE [Concomitant]
  9. D-SOLBITOL [Concomitant]
  10. EPOETIN BETA [Concomitant]
  11. VERAPAMIL HYDROCHLORIDE [Concomitant]
  12. SENNOSIDE [Concomitant]
  13. DEXTROMETHORPHAN HYDROBROMIDE [Concomitant]
  14. CIDEFERRON [Concomitant]
  15. GLUCOSE [Concomitant]

REACTIONS (8)
  - ATRIAL FIBRILLATION [None]
  - BLOOD PRESSURE SYSTOLIC DECREASED [None]
  - DEPRESSED LEVEL OF CONSCIOUSNESS [None]
  - DIZZINESS [None]
  - HYPERKALAEMIA [None]
  - MALAISE [None]
  - SINUS BRADYCARDIA [None]
  - VENTRICULAR TACHYCARDIA [None]
